FAERS Safety Report 14049725 (Version 2)
Quarter: 2017Q4

REPORT INFORMATION
  Report Type: Spontaneous
  Country: AU (occurrence: AU)
  Receive Date: 20171005
  Receipt Date: 20171012
  Transmission Date: 20180321
  Serious: Yes (Other)
  Sender: FDA-Public Use
  Company Number: AU-PFIZER INC-2017430365

PATIENT
  Age: 72 Year
  Sex: Male

DRUGS (3)
  1. RAMIPRIL. [Suspect]
     Active Substance: RAMIPRIL
     Dosage: 5 MG, DAILY
     Route: 048
  2. CLOPIDOGREL BISULFATE. [Suspect]
     Active Substance: CLOPIDOGREL BISULFATE
     Dosage: 75 MG, DAILY
     Route: 048
  3. METOPROLOL SANDOZ [Suspect]
     Active Substance: METOPROLOL
     Dosage: 100 MG, 2X/DAY
     Route: 065

REACTIONS (10)
  - Weight increased [Unknown]
  - Influenza [Unknown]
  - Gastrointestinal sounds abnormal [Unknown]
  - Yellow skin [Unknown]
  - Ocular icterus [Unknown]
  - Diarrhoea [Unknown]
  - Abdominal distension [Unknown]
  - Flatulence [Unknown]
  - Gastric dilatation [Unknown]
  - Epistaxis [Unknown]

NARRATIVE: CASE EVENT DATE: 20170215
